FAERS Safety Report 4782362-9 (Version None)
Quarter: 2005Q3

REPORT INFORMATION
  Report Type: 
  Country: None (occurrence: None)
  Receive Date: 20050914
  Receipt Date: 20050706
  Transmission Date: 20060218
  Serious: Yes (Other)
  Sender: FDA-Public Use
  Company Number: 163-20785-05070137

PATIENT
  Sex: 0

DRUGS (5)
  1. THALOMID [Suspect]
     Indication: MULTIPLE MYELOMA
     Dosage: INDUCTION PHASE:  200-400 MG/D PO STARTING ON DAY 4/MAINTENANCE PHASE: 200-400 MG/D PO
     Route: 048
     Dates: start: 20030327, end: 20040101
  2. GENASENSE [Suspect]
     Indication: MULTIPLE MYELOMA
     Dosage: INDUCTION PHASE: 7MG/KG/D CIV ON DAYS 1-7, 22-28, AND 43-49, INTRAVENOUS DRIP; SEE IMAGE
     Route: 041
     Dates: start: 20030324, end: 20031101
  3. GENASENSE [Suspect]
     Indication: MULTIPLE MYELOMA
     Dosage: INDUCTION PHASE: 7MG/KG/D CIV ON DAYS 1-7, 22-28, AND 43-49, INTRAVENOUS DRIP; SEE IMAGE
     Route: 041
     Dates: start: 20031103, end: 20031201
  4. GENASENSE [Suspect]
     Indication: MULTIPLE MYELOMA
     Dosage: INDUCTION PHASE: 7MG/KG/D CIV ON DAYS 1-7, 22-28, AND 43-49, INTRAVENOUS DRIP; SEE IMAGE
     Route: 041
     Dates: start: 20031208, end: 20040101
  5. DEXAMETHASONE [Suspect]
     Indication: MULTIPLE MYELOMA
     Dosage: INDUCTION PHASE:  40MG/D PO ON DAYS 4-7, 25-28, AND 46-49/MAINTENANCE PHASE: 20MG/D PO ON DAYS 4-7 E
     Route: 048
     Dates: start: 20030327, end: 20040101

REACTIONS (3)
  - HYPOKALAEMIA [None]
  - NEUTROPHIL COUNT DECREASED [None]
  - OEDEMA [None]
